FAERS Safety Report 5639705-3 (Version None)
Quarter: 2008Q1

REPORT INFORMATION
  Report Type: 
  Country: None (occurrence: None)
  Receive Date: 20080131
  Receipt Date: 20071031
  Transmission Date: 20080703
  Serious: Yes (Hospitalization, Other)
  Sender: FDA-Public Use
  Company Number: 163-21880-07110056

PATIENT
  Age: 57 Year
  Sex: Female

DRUGS (8)
  1. REVLIMID [Suspect]
     Indication: MYELODYSPLASTIC SYNDROME
     Dosage: 2.5 MG, 1 IN 2 D, ORAL ; 10 MG, 1 IN 1 D, ORAL
     Route: 048
     Dates: start: 20070413, end: 20070628
  2. REVLIMID [Suspect]
     Indication: MYELODYSPLASTIC SYNDROME
     Dosage: 2.5 MG, 1 IN 2 D, ORAL ; 10 MG, 1 IN 1 D, ORAL
     Route: 048
     Dates: start: 20070629, end: 20071011
  3. PROCRIT [Concomitant]
  4. VICODIN [Concomitant]
  5. TEMAZEPAM [Concomitant]
  6. DIAZEPAM [Concomitant]
  7. MORPHINE [Concomitant]
  8. FERROUS SULFATE TAB [Concomitant]

REACTIONS (8)
  - ABDOMINAL DISCOMFORT [None]
  - ACUTE MYELOID LEUKAEMIA [None]
  - ANAEMIA [None]
  - ANOREXIA [None]
  - DIARRHOEA [None]
  - HYPOTENSION [None]
  - RASH [None]
  - THROMBOCYTOPENIA [None]
